FAERS Safety Report 19636678 (Version 1)
Quarter: 2021Q3

REPORT INFORMATION
  Report Type: Spontaneous
  Country: GB (occurrence: GB)
  Receive Date: 20210730
  Receipt Date: 20210730
  Transmission Date: 20211014
  Serious: Yes (Hospitalization)
  Sender: FDA-Public Use
  Company Number: GB-TEVA-2021-GB-1936421

PATIENT

DRUGS (1)
  1. QUININE SULPHATE [Suspect]
     Active Substance: QUININE SULFATE
     Indication: PRODUCT USED FOR UNKNOWN INDICATION
     Dosage: 300 MILLIGRAM DAILY; STRENGTH: 300MG,  IN EVENING; ;

REACTIONS (4)
  - Malaise [Recovered/Resolved]
  - Wrong product administered [Unknown]
  - Product dose omission issue [Unknown]
  - Product dispensing error [Unknown]
